FAERS Safety Report 12093001 (Version 3)
Quarter: 2016Q2

REPORT INFORMATION
  Report Type: Spontaneous
  Country: US (occurrence: US)
  Receive Date: 20160219
  Receipt Date: 20160524
  Transmission Date: 20160815
  Serious: Yes (Hospitalization)
  Sender: FDA-Public Use
  Company Number: US-PFIZER INC-2016092244

PATIENT
  Age: 65 Year
  Sex: Female
  Weight: 54 kg

DRUGS (5)
  1. ONDANSETRON HCL [Concomitant]
     Active Substance: ONDANSETRON HYDROCHLORIDE
     Indication: ABDOMINAL DISCOMFORT
     Dosage: 4 MG, DAILY (ONE 4MG TABLET A DAY BY MOUTH)
     Route: 048
     Dates: start: 201505
  2. LETROZOLE. [Concomitant]
     Active Substance: LETROZOLE
     Dosage: 2.5 MG, DAILY (2.5MG CAPSULE ONE A DAY BY MOUTH)
     Route: 048
     Dates: start: 201504
  3. LETROZOLE. [Concomitant]
     Active Substance: LETROZOLE
     Indication: HORMONE LEVEL ABNORMAL
     Dosage: 2.5 MG, DAILY (2.5MG CAPSULE ONE A DAY BY MOUTH)
     Route: 048
     Dates: start: 201505
  4. ONDANSETRON HCL [Concomitant]
     Active Substance: ONDANSETRON HYDROCHLORIDE
     Dosage: 4 MG, DAILY (ONE 4MG TABLET A DAY BY MOUTH)
     Route: 048
     Dates: start: 201504
  5. IBRANCE [Suspect]
     Active Substance: PALBOCICLIB
     Indication: BREAST CANCER STAGE IV
     Dosage: 125 MG, CYCLIC (ONE 125MG CAPSULE BY MOUTH FOR 21 DAYS AND 7 DAYS OFF)
     Route: 048
     Dates: start: 201504

REACTIONS (3)
  - Abdominal discomfort [Not Recovered/Not Resolved]
  - Constipation [Not Recovered/Not Resolved]
  - Alopecia [Not Recovered/Not Resolved]

NARRATIVE: CASE EVENT DATE: 201504
